FAERS Safety Report 5599158-0 (Version None)
Quarter: 2008Q1

REPORT INFORMATION
  Report Type: 
  Country: None (occurrence: None)
  Receive Date: 20080122
  Receipt Date: 20080114
  Transmission Date: 20080703
  Serious: Yes (Hospitalization)
  Sender: FDA-Public Use
  Company Number: FR-BRISTOL-MYERS SQUIBB COMPANY-14039366

PATIENT
  Age: 48 Year
  Sex: Male

DRUGS (3)
  1. BARACLUDE [Suspect]
     Indication: HEPATITIS
  2. DAIVONEX [Suspect]
     Indication: PSORIASIS
  3. DAIVOBET [Suspect]
     Indication: PSORIASIS

REACTIONS (4)
  - PAIN [None]
  - PARAESTHESIA [None]
  - SKIN EXFOLIATION [None]
  - THERMAL BURN [None]
